FAERS Safety Report 12787678 (Version 1)
Quarter: 2016Q3

REPORT INFORMATION
  Report Type: Spontaneous
  Country: US (occurrence: US)
  Receive Date: 20160928
  Receipt Date: 20160928
  Transmission Date: 20161109
  Serious: No
  Sender: FDA-Public Use
  Company Number: None

PATIENT
  Age: 52 Year
  Sex: Male

DRUGS (14)
  1. LIORESAL [Concomitant]
     Active Substance: BACLOFEN
  2. NEURONTIN [Concomitant]
     Active Substance: GABAPENTIN
  3. METAMUCIL [Concomitant]
     Active Substance: PLANTAGO SEED
  4. AMBIEN [Concomitant]
     Active Substance: ZOLPIDEM TARTRATE
  5. WELLBUTRIN [Concomitant]
     Active Substance: BUPROPION HYDROCHLORIDE
  6. LOPRESSOR [Concomitant]
     Active Substance: METOPROLOL TARTRATE
  7. LEVAQUIN [Concomitant]
     Active Substance: LEVOFLOXACIN
  8. LEXAPRO [Concomitant]
     Active Substance: ESCITALOPRAM OXALATE
  9. SEROQUEL [Concomitant]
     Active Substance: QUETIAPINE FUMARATE
  10. GILENYA [Concomitant]
     Active Substance: FINGOLIMOD HYDROCHLORIDE
  11. HIPPROX [Concomitant]
  12. FOLIC ACID. [Concomitant]
     Active Substance: FOLIC ACID
  13. AMPYRA [Suspect]
     Active Substance: DALFAMPRIDINE
     Indication: MULTIPLE SCLEROSIS
     Route: 048
     Dates: start: 201512
  14. VITAMIN C [Concomitant]
     Active Substance: ASCORBIC ACID

REACTIONS (1)
  - Laboratory test abnormal [None]

NARRATIVE: CASE EVENT DATE: 20160830
